FAERS Safety Report 10077973 (Version 1)
Quarter: 2014Q2

REPORT INFORMATION
  Report Type: Spontaneous
  Country: US (occurrence: US)
  Receive Date: 20140415
  Receipt Date: 20140415
  Transmission Date: 20141212
  Serious: No
  Sender: FDA-Public Use
  Company Number: US-009507513-1404USA004347

PATIENT
  Sex: Female

DRUGS (12)
  1. PEGINTRON [Suspect]
     Indication: HEPATITIS C
     Dosage: 150 MICROGRAM, QW
     Route: 058
     Dates: start: 20131206, end: 20140404
  2. VICTRELIS [Suspect]
     Indication: HEPATITIS C
     Dosage: 800 MG, TID
     Route: 048
     Dates: start: 20140103, end: 20140404
  3. REBETOL [Suspect]
     Indication: HEPATITIS C
     Dosage: 7 DF, QD
     Route: 048
     Dates: start: 20131206, end: 20140404
  4. PROMETHAZINE [Concomitant]
  5. METFORMIN [Concomitant]
  6. METHADONE HYDROCHLORIDE [Concomitant]
  7. OMEPRAZOLE [Concomitant]
  8. ORTHO TRI-CYCLEN LO [Concomitant]
  9. WELLBUTRIN [Concomitant]
  10. LEVOTHYROXINE SODIUM [Concomitant]
  11. HYDROCHLOROTHIAZIDE [Concomitant]
  12. BACTROBAN [Concomitant]

REACTIONS (1)
  - Viral load increased [Unknown]
